FAERS Safety Report 15650151 (Version 2)
Quarter: 2018Q4

REPORT INFORMATION
  Report Type: Report from Study
  Country: CA (occurrence: CA)
  Receive Date: 20181123
  Receipt Date: 20181217
  Transmission Date: 20190205
  Serious: Yes (Other)
  Sender: FDA-Public Use
  Company Number: CA-REGENERON PHARMACEUTICALS, INC.-2018-45027

PATIENT

DRUGS (1)
  1. EYLEA [Suspect]
     Active Substance: AFLIBERCEPT
     Indication: DIABETIC RETINAL OEDEMA
     Dosage: UNK
     Dates: start: 20180221, end: 20180516

REACTIONS (3)
  - Diabetic retinopathy [Unknown]
  - Vitreous haemorrhage [Unknown]
  - Cataract [Unknown]

NARRATIVE: CASE EVENT DATE: 201805
